FAERS Safety Report 21898711 (Version 1)
Quarter: 2023Q1

REPORT INFORMATION
  Report Type: Spontaneous
  Country: US (occurrence: None)
  Receive Date: 20230120
  Receipt Date: 20230120
  Transmission Date: 20230417
  Serious: No
  Sender: FDA-Public Use
  Company Number: None

PATIENT
  Age: 2 Year
  Sex: Male

DRUGS (1)
  1. VIGABATRIN [Suspect]
     Active Substance: VIGABATRIN
     Indication: Epilepsy
     Dosage: FREQUENCY : TWICE A DAY;?
     Route: 048
     Dates: start: 20220401, end: 20230114

REACTIONS (9)
  - Acute respiratory failure [None]
  - Respiratory syncytial virus infection [None]
  - Pneumonia [None]
  - Superinfection bacterial [None]
  - Acute respiratory distress syndrome [None]
  - Respiratory failure [None]
  - Hypercapnia [None]
  - Oxygen saturation decreased [None]
  - Acidosis [None]

NARRATIVE: CASE EVENT DATE: 20230114
